FAERS Safety Report 19423031 (Version 1)
Quarter: 2021Q2

REPORT INFORMATION
  Report Type: Spontaneous
  Country: DE (occurrence: DE)
  Receive Date: 20210616
  Receipt Date: 20210616
  Transmission Date: 20210717
  Serious: Yes (Death, Hospitalization)
  Sender: FDA-Public Use
  Company Number: DE-TEVA-2021-DE-1921425

PATIENT
  Age: 57 Year
  Sex: Male

DRUGS (17)
  1. RIVAROXABAN [Concomitant]
     Active Substance: RIVAROXABAN
     Dosage: 20 MILLIGRAM DAILY; 1?0?0?0
  2. PEMBROLIZUMAB. [Suspect]
     Active Substance: PEMBROLIZUMAB
     Dosage: ACCORDING TO THE SCHEME
     Route: 065
  3. DICLOFENAC [Concomitant]
     Active Substance: DICLOFENAC
     Dosage: 9.31 MG, IF NECESSARY
  4. METAMIZOL [Concomitant]
     Active Substance: METAMIZOLE SODIUM
     Dosage: 500 MG, IF NECESSARY
  5. ZOPICLON [Concomitant]
     Active Substance: ZOPICLONE
     Dosage: 7.5 MG, IF NECESSARY
  6. RAMIPRIL. [Concomitant]
     Active Substance: RAMIPRIL
     Dosage: 10 MILLIGRAM DAILY; 1?0?1?0
  7. DEXAMETHASON [Concomitant]
     Active Substance: DEXAMETHASONE
     Dosage: 4 MG, ACCORDING TO PLAN
  8. PEMETREXED. [Suspect]
     Active Substance: PEMETREXED
     Dosage: ACCORDING TO THE SCHEME
     Route: 065
  9. IBUPROFEN. [Concomitant]
     Active Substance: IBUPROFEN
     Dosage: 400 MG, IF NECESSARY
  10. FOLSAEURE [Concomitant]
     Active Substance: FOLIC ACID
     Dosage: .8 MILLIGRAM DAILY; 1?0?1?0
  11. ANORO 55MIKROGRAMM/22MIKROGRAMM [Concomitant]
     Active Substance: UMECLIDINIUM BROMIDE\VILANTEROL TRIFENATATE
     Dosage: 1 DOSAGE FORMS DAILY; 55 | 22 UG, 1?0?0?0
  12. ACETYLSALICYLSAEURE [Concomitant]
     Active Substance: ASPIRIN
     Dosage: 100 MILLIGRAM DAILY; 0?1?0?0
  13. LERCANIDIPIN [Concomitant]
     Active Substance: LERCANIDIPINE
     Dosage: 10 MILLIGRAM DAILY; 1?0?0?0
  14. L?THYROXIN AVENTIS 50MIKROGRAMM [Concomitant]
     Dosage: 50 MICROGRAM DAILY; 1?0?0?0
  15. ATORVASTATIN [Concomitant]
     Active Substance: ATORVASTATIN
     Dosage: 40 MILLIGRAM DAILY; 0?0?1?0
  16. TILIDINE/NALOXONE [Concomitant]
     Active Substance: NALOXONE HYDROCHLORIDE\TILIDINE HYDROCHLORIDE
     Dosage: 2 DOSAGE FORMS DAILY; 8|100 MG, 1?0?1?0
  17. IBUPROFEN. [Concomitant]
     Active Substance: IBUPROFEN
     Dosage: 1200 MILLIGRAM DAILY; 1?1?1?0

REACTIONS (2)
  - Musculoskeletal pain [Unknown]
  - Paraesthesia [Unknown]
